FAERS Safety Report 15493159 (Version 1)
Quarter: 2018Q4

REPORT INFORMATION
  Report Type: Spontaneous
  Country: KR (occurrence: KR)
  Receive Date: 20181012
  Receipt Date: 20181012
  Transmission Date: 20190205
  Serious: Yes (Life-Threatening, Other)
  Sender: FDA-Public Use
  Company Number: KR-MACLEODS PHARMACEUTICALS US LTD-MAC2018017396

PATIENT

DRUGS (6)
  1. HEPARIN [Concomitant]
     Active Substance: HEPARIN SODIUM
     Indication: CONGESTIVE CARDIOMYOPATHY
     Dosage: UNK, 25,000 IU/5 ML
     Route: 065
  2. KALIMATE POWDER [Concomitant]
     Indication: CONGESTIVE CARDIOMYOPATHY
     Dosage: 5 GRAM
     Route: 065
  3. DOBUTAMINE [Concomitant]
     Active Substance: DOBUTAMINE\DOBUTAMINE HYDROCHLORIDE
     Indication: CONGESTIVE CARDIOMYOPATHY
     Dosage: UNK, 200 MG/ 250 ML
     Route: 065
  4. TAMSULOSIN [Suspect]
     Active Substance: TAMSULOSIN
     Indication: CONGESTIVE CARDIOMYOPATHY
     Dosage: 0.2 MILLIGRAM
     Route: 065
  5. FUROSEMIDE. [Concomitant]
     Active Substance: FUROSEMIDE
     Indication: CONGESTIVE CARDIOMYOPATHY
     Dosage: 10 MILLIGRAM
     Route: 042
  6. DIGOXIN. [Concomitant]
     Active Substance: DIGOXIN
     Indication: CONGESTIVE CARDIOMYOPATHY
     Dosage: 0.25 MILLIGRAM
     Route: 065

REACTIONS (1)
  - Drug ineffective [Unknown]
